FAERS Safety Report 8374354 (Version 2)
Quarter: 2012Q4

REPORT INFORMATION
  Report Type: 
  Country: US (occurrence: US)
  Receive Date: 20120131
  Receipt Date: 20121122
  Transmission Date: 20130627
  Serious: Yes (Hospitalization, Other)
  Sender: FDA-Public Use
  Company Number: PHEH2012US002383

PATIENT
  Sex: Female

DRUGS (6)
  1. TASIGNA [Suspect]
     Indication: LEUKAEMIA
     Dosage: 400 mg, BID
     Route: 048
     Dates: start: 20110224
  2. DIOVAN [Concomitant]
  3. VENLAFAXINE [Concomitant]
     Dosage: 150 mg/ day
  4. FUROSEMIDE [Concomitant]
     Dosage: 400 mg/day
  5. SYNTHROID [Concomitant]
     Dosage: 112 ug/day
  6. LISINOPRIL [Concomitant]
     Dosage: UNK UKN, UNK

REACTIONS (7)
  - Pruritus [Unknown]
  - Musculoskeletal discomfort [Unknown]
  - Depression [Unknown]
  - Crying [Unknown]
  - Pruritus generalised [Not Recovered/Not Resolved]
  - Erythema [Unknown]
  - Urticaria [Unknown]
